FAERS Safety Report 8179794-8 (Version None)
Quarter: 2012Q1

REPORT INFORMATION
  Report Type: 
  Country: None (occurrence: None)
  Receive Date: 20120302
  Receipt Date: 20120224
  Transmission Date: 20120608
  Serious: Yes (Other)
  Sender: FDA-Public Use
  Company Number: US-JNJFOC-20120204553

PATIENT
  Sex: Female
  Weight: 96 kg

DRUGS (11)
  1. LYRICA [Suspect]
     Route: 065
     Dates: end: 20111201
  2. ACETAMINOPHEN [Suspect]
     Indication: FIBROMYALGIA
     Route: 065
  3. IBUPROFEN [Suspect]
     Indication: FIBROMYALGIA
     Route: 048
  4. NAPROXEN (ALEVE) [Suspect]
     Indication: FIBROMYALGIA
     Route: 065
  5. ALL OTHER THERAPEUTIC DRUG [Suspect]
     Indication: SLEEP DISORDER
     Route: 065
  6. CYMBALTA [Concomitant]
     Indication: MYALGIA
  7. CYMBALTA [Concomitant]
     Indication: DEPRESSION
  8. LYRICA [Suspect]
     Indication: FIBROMYALGIA
     Dosage: STARTED 3-4 YEARS AGO
     Route: 065
  9. DIVALPROEX SODIUM [Concomitant]
     Indication: BIPOLAR DISORDER
  10. IBUPROFEN [Suspect]
     Route: 048
  11. ACETAMINOPHEN [Suspect]
     Route: 065

REACTIONS (6)
  - INCREASED APPETITE [None]
  - SUICIDE ATTEMPT [None]
  - WEIGHT INCREASED [None]
  - FIBROMYALGIA [None]
  - INSOMNIA [None]
  - DRUG INEFFECTIVE [None]
